FAERS Safety Report 5699369-X (Version None)
Quarter: 2008Q2

REPORT INFORMATION
  Report Type: 
  Country: None (occurrence: None)
  Receive Date: 20080404
  Receipt Date: 20080328
  Transmission Date: 20081010
  Serious: Yes (Life-Threatening, Hospitalization, Other)
  Sender: FDA-Public Use
  Company Number: URSO-2008-035

PATIENT
  Age: 20 Year
  Sex: Female

DRUGS (5)
  1. URSODIOL [Suspect]
     Indication: CHOLESTASIS OF PREGNANCY
     Dosage: 250 MG/ DAY , ORAL
     Route: 048
  2. ZYRTEC (CETIRIZINE HYDROCHLORIDE), 10 MG/DAY [Concomitant]
  3. GLYCEROL TRINITRATE [Concomitant]
  4. MAGNESIUM SULPHATE, 2G/H CONTINUOUS INFUSION [Concomitant]
  5. ALDOMET [Concomitant]

REACTIONS (15)
  - BLOOD PRESSURE INCREASED [None]
  - CAESAREAN SECTION [None]
  - DISSEMINATED INTRAVASCULAR COAGULATION [None]
  - DRUG EXPOSURE DURING PREGNANCY [None]
  - ECLAMPSIA [None]
  - FOETAL DISTRESS SYNDROME [None]
  - HAEMOGLOBIN DECREASED [None]
  - HEADACHE [None]
  - NAUSEA [None]
  - PLATELET COUNT DECREASED [None]
  - PREMATURE BABY [None]
  - PREMATURE LABOUR [None]
  - PRURITUS [None]
  - VISION BLURRED [None]
  - VOMITING [None]
